FAERS Safety Report 5160500-6 (Version None)
Quarter: 2006Q4

REPORT INFORMATION
  Report Type: 
  Country: None (occurrence: None)
  Receive Date: 20061129
  Receipt Date: 20061018
  Transmission Date: 20070319
  Serious: Yes (Other)
  Sender: FDA-Public Use
  Company Number: US-BOEHRINGER INGELHEIM PHARMACEUTICALS, INC.-2006-BP-12279BP

PATIENT
  Sex: Male
  Weight: 88.45 kg

DRUGS (20)
  1. MIRAPEX [Suspect]
     Indication: MOVEMENT DISORDER
  2. MIRAPEX [Suspect]
     Indication: SEXUAL DYSFUNCTION
  3. VIAGRA [Suspect]
     Indication: ERECTILE DYSFUNCTION
     Route: 048
  4. COLACE [Concomitant]
     Indication: IRRITABLE BOWEL SYNDROME
  5. ASPIRIN [Concomitant]
  6. SINEMET [Concomitant]
  7. AMBIEN [Concomitant]
     Indication: SLEEP DISORDER
  8. PREVACID [Concomitant]
  9. LASIX [Concomitant]
     Indication: DIURETIC THERAPY
  10. LEXAPRO [Concomitant]
  11. WELLBUTRIN [Concomitant]
  12. VITAMIN E [Concomitant]
  13. MELATONIN [Concomitant]
     Indication: SLEEP DISORDER
  14. ADVAIR DISKUS 100/50 [Concomitant]
     Indication: ASTHMA
     Route: 055
  15. CLARITIN [Concomitant]
     Indication: HYPERSENSITIVITY
  16. FOSAMAX [Concomitant]
  17. PRILOSEC [Concomitant]
  18. FLONASE [Concomitant]
  19. LOVASTATIN [Concomitant]
  20. SEROQUEL [Concomitant]

REACTIONS (6)
  - BODY HEIGHT DECREASED [None]
  - DRUG INEFFECTIVE [None]
  - ERECTILE DYSFUNCTION [None]
  - OSTEOGENESIS IMPERFECTA [None]
  - SPEECH DISORDER [None]
  - WEIGHT INCREASED [None]
